FAERS Safety Report 7416312-3 (Version None)
Quarter: 2011Q2

REPORT INFORMATION
  Report Type: 
  Country: None (occurrence: None)
  Receive Date: 20110414
  Receipt Date: 20110407
  Transmission Date: 20111010
  Serious: Yes (Other)
  Sender: FDA-Public Use
  Company Number: AR-PFIZER INC-2011079018

PATIENT
  Age: 67 Year
  Sex: Female
  Weight: 95.5 kg

DRUGS (16)
  1. ROSUVASTATIN [Concomitant]
     Indication: DYSLIPIDAEMIA
     Dosage: 10 MG, 1X/DAY
     Route: 048
     Dates: start: 20100127
  2. ENALAPRIL [Concomitant]
     Indication: HYPERTENSION
     Dosage: 5 MG, 1X/DAY
     Route: 048
  3. CORBIS [Concomitant]
     Indication: HYPERTENSION
     Dosage: 5 MG, 1X/DAY
     Route: 048
     Dates: start: 20100415
  4. DIOVAN [Concomitant]
     Indication: HYPERTENSION
     Dosage: 160 MG, 1X/DAY
     Route: 048
     Dates: start: 20091130, end: 20101215
  5. MEPREDNISONE [Concomitant]
     Indication: IMMUNOSUPPRESSION
     Dosage: 8 MG, 1X/DAY
     Route: 048
     Dates: start: 20091106
  6. OMEPRAZOLE [Concomitant]
     Indication: PROPHYLAXIS
     Dosage: 20 MG, 1X/DAY
     Route: 048
     Dates: start: 20091121
  7. VITAMIN B [Concomitant]
     Indication: ANAEMIA
     Dosage: 5000 IU, 1X/DAY
     Route: 048
  8. BACTRIM [Concomitant]
     Indication: PROPHYLAXIS
     Dosage: 160/800 MG 3X WEEK
     Route: 048
     Dates: start: 20090730
  9. SIROLIMUS [Suspect]
     Indication: IMMUNOSUPPRESSION
     Dosage: 4 MG, 1X/DAY
     Route: 048
     Dates: start: 20091124, end: 20100804
  10. CICLOSPORIN [Concomitant]
     Indication: IMMUNOSUPPRESSION
     Dosage: 175 MG, 1X/DAY
     Route: 048
     Dates: start: 20100804
  11. ERYTHROPOIETIN [Concomitant]
     Indication: ANAEMIA
     Dosage: 8000 UL, MONTHLY
     Route: 058
     Dates: start: 20091121
  12. FOLIC ACID [Concomitant]
     Indication: OSTEOPENIA
     Dosage: 30 MG, 1X/DAY
     Route: 048
  13. SINTROM [Concomitant]
     Indication: THROMBOSIS PROPHYLAXIS
     Dosage: 20 MG, WEEKLY
     Route: 048
     Dates: start: 20100608, end: 20100830
  14. SINTROM [Concomitant]
     Dosage: 19 MG, WEEKLY
     Route: 048
     Dates: start: 20100603, end: 20110121
  15. MYFORTIC [Concomitant]
     Indication: IMMUNOSUPPRESSION
     Dosage: 720 MG, 1X/DAY
     Route: 048
     Dates: start: 20091104
  16. CALCITRIOL [Concomitant]
     Indication: OSTEOPENIA
     Dosage: 0.25 UG, 1X/DAY
     Route: 048
     Dates: end: 20110110

REACTIONS (2)
  - DYSPNOEA [None]
  - OEDEMA [None]
